FAERS Safety Report 9062065 (Version 1)
Quarter: 2013Q1

REPORT INFORMATION
  Report Type: Spontaneous
  Country: US (occurrence: US)
  Receive Date: 20130127
  Receipt Date: 20130127
  Transmission Date: 20140127
  Serious: No
  Sender: FDA-Public Use
  Company Number: US-ALLERGAN-1213340US

PATIENT
  Age: 78 Year
  Sex: Male

DRUGS (14)
  1. PRED FORTE [Suspect]
     Indication: POST PROCEDURAL COMPLICATION
     Dosage: 1 GTT OD, UNK
     Route: 047
     Dates: end: 201207
  2. PRED FORTE [Suspect]
     Dosage: 1 GTT OU, UNK
     Route: 047
     Dates: start: 201012
  3. PATADAY [Concomitant]
     Indication: EYE LUBRICATION THERAPY
     Dosage: 1 GTT, UNK
     Route: 047
  4. PRIMIDONE [Concomitant]
     Indication: ESSENTIAL TREMOR
     Dosage: 100 MG, BID
     Route: 048
  5. INDERAL LA [Concomitant]
     Indication: ESSENTIAL TREMOR
     Dosage: 120 MG, UNK
     Route: 048
  6. DEXILANT [Concomitant]
     Indication: GASTROOESOPHAGEAL REFLUX DISEASE
     Dosage: 60 MG, QD
     Route: 048
  7. CELEXA [Concomitant]
     Indication: DEPRESSION
     Dosage: 40 MG, QD
     Route: 048
  8. LIPITOR [Concomitant]
     Indication: HYPERCHOLESTEROLAEMIA
     Dosage: 40 MG, QHS
     Route: 048
  9. BUMEX [Concomitant]
     Indication: OEDEMA
     Dosage: UNK, PRN
  10. NTG [Concomitant]
     Indication: CHEST PAIN
     Dosage: UNK, PRN
     Route: 060
  11. NTG [Concomitant]
     Indication: DYSPNOEA
  12. GABAPENTIN [Concomitant]
     Indication: POST HERPETIC NEURALGIA
     Dosage: 600 MG, BID
     Route: 048
  13. HYDROCODONE [Concomitant]
     Indication: BACK PAIN
     Dosage: UNK, PRN
     Route: 048
  14. FLEXERIL [Concomitant]
     Indication: BACK PAIN
     Dosage: 10 MG, PRN
     Route: 048

REACTIONS (1)
  - Intraocular pressure increased [Recovered/Resolved]
